FAERS Safety Report 5494102-9 (Version None)
Quarter: 2007Q4

REPORT INFORMATION
  Report Type: 
  Country: None (occurrence: None)
  Receive Date: 20071022
  Receipt Date: 20071006
  Transmission Date: 20080405
  Serious: Yes (Death)
  Sender: FDA-Public Use
  Company Number: 2007S1000238

PATIENT

DRUGS (3)
  1. CUBICIN [Suspect]
     Indication: ENDOCARDITIS
     Dosage: 7.0 MG/KG; Q24H;
  2. GENTAMICIN [Concomitant]
  3. VANCOMYCIN [Concomitant]

REACTIONS (2)
  - DISEASE PROGRESSION [None]
  - ENDOCARDITIS [None]
